FAERS Safety Report 6189843-4 (Version None)
Quarter: 2009Q2

REPORT INFORMATION
  Report Type: 
  Country: None (occurrence: None)
  Receive Date: 20090512
  Receipt Date: 20090512
  Transmission Date: 20091009
  Serious: Yes (Hospitalization)
  Sender: FDA-Public Use
  Company Number: None

PATIENT
  Age: 89 Year
  Sex: Male
  Weight: 75.2971 kg

DRUGS (4)
  1. OPTIRAY 300 [Suspect]
     Indication: CORONARY ARTERY DISEASE
     Dosage: 225MG INTRACARDIAC
     Route: 016
     Dates: start: 20081124, end: 20081124
  2. OPTIRAY 300 [Suspect]
     Indication: MYOCARDIAL INFARCTION
     Dosage: 225MG INTRACARDIAC
     Route: 016
     Dates: start: 20081124, end: 20081124
  3. XIENCE V EVEROLIMUS STENT ABBOTT [Suspect]
     Indication: CORONARY ARTERY DISEASE
     Dates: start: 20081124, end: 20081124
  4. XIENCE V EVEROLIMUS STENT ABBOTT [Suspect]
     Indication: MYOCARDIAL INFARCTION
     Dates: start: 20081124, end: 20081124

REACTIONS (4)
  - BLOOD PRESSURE SYSTOLIC DECREASED [None]
  - OXYGEN SATURATION DECREASED [None]
  - PROCEDURAL COMPLICATION [None]
  - PULMONARY OEDEMA [None]
